FAERS Safety Report 8947663 (Version 1)
Quarter: 2012Q4

REPORT INFORMATION
  Report Type: 
  Country: US (occurrence: US)
  Receive Date: 20121204
  Receipt Date: 20121204
  Transmission Date: 20130627
  Serious: No
  Sender: FDA-Public Use
  Company Number: US-ASTRAZENECA-2000AU14655

PATIENT
  Age: 51 Year
  Sex: Female
  Weight: 97.1 kg

DRUGS (4)
  1. NEXIUM [Suspect]
     Route: 048
  2. PRILOSEC OTC [Suspect]
     Indication: GASTROOESOPHAGEAL REFLUX DISEASE
     Route: 048
     Dates: start: 1994
  3. ACCUPRIL [Concomitant]
  4. XANAX [Concomitant]

REACTIONS (4)
  - Weight increased [Recovering/Resolving]
  - Gastrooesophageal reflux disease [Unknown]
  - Drug ineffective [Unknown]
  - Drug dose omission [Unknown]
